FAERS Safety Report 18968385 (Version 1)
Quarter: 2021Q1

REPORT INFORMATION
  Report Type: Not Available
  Country: US (occurrence: US)
  Receive Date: 20210304
  Receipt Date: 20210304
  Transmission Date: 20210420
  Serious: No
  Sender: FDA-Public Use
  Company Number: US-NEUROCRINE BIOSCIENCES INC.-2021NBI00826

PATIENT
  Age: 69 Year
  Sex: Female

DRUGS (2)
  1. INGREZZA [Suspect]
     Active Substance: VALBENAZINE
     Indication: TARDIVE DYSKINESIA
     Dosage: 40 MG AND 80 MG ONCE DAILY
     Route: 048
  2. INGREZZA [Suspect]
     Active Substance: VALBENAZINE
     Dosage: 160 MG (40 MG TWICE DAILY AND 80 MG ONCE DAILY)
     Route: 048

REACTIONS (3)
  - Off label use [Unknown]
  - Tremor [Unknown]
  - Dyskinesia [Unknown]
